FAERS Safety Report 6244932-0 (Version None)
Quarter: 2009Q2

REPORT INFORMATION
  Report Type: 
  Country: None (occurrence: None)
  Receive Date: 20090623
  Receipt Date: 20090623
  Transmission Date: 20091009
  Serious: No
  Sender: FDA-Public Use
  Company Number: None

PATIENT
  Sex: Female

DRUGS (3)
  1. LAMOTRIGINE [Suspect]
     Indication: EPILEPSY
     Dosage: 200 MG PO Q AM AND 300 MG PO HS
     Route: 048
     Dates: start: 20090530, end: 20090617
  2. ZONEGRAN [Concomitant]
  3. KEPPRA [Concomitant]

REACTIONS (3)
  - CONVULSION [None]
  - NO THERAPEUTIC RESPONSE [None]
  - PRODUCT SUBSTITUTION ISSUE [None]
